FAERS Safety Report 21271632 (Version 3)
Quarter: 2023Q2

REPORT INFORMATION
  Report Type: Report from Study
  Country: US (occurrence: US)
  Receive Date: 20220830
  Receipt Date: 20230630
  Transmission Date: 20230722
  Serious: Yes (Hospitalization, Other)
  Sender: FDA-Public Use
  Company Number: US-JAZZ-2022-US-028052

PATIENT
  Age: 50 Year
  Sex: Female
  Weight: 107 kg

DRUGS (1)
  1. EPIDIOLEX [Suspect]
     Active Substance: CANNABIDIOL
     Indication: Product used for unknown indication
     Dosage: 7.5 MILLILITER, BID
     Route: 048

REACTIONS (6)
  - Seizure [Unknown]
  - Fall [Unknown]
  - Wrist fracture [Unknown]
  - Incision site haemorrhage [Unknown]
  - Incision site swelling [Unknown]
  - Illness [Unknown]

NARRATIVE: CASE EVENT DATE: 20220815
